FAERS Safety Report 7707910-8 (Version None)
Quarter: 2011Q3

REPORT INFORMATION
  Report Type: 
  Country: None (occurrence: None)
  Receive Date: 20110824
  Receipt Date: 20110816
  Transmission Date: 20111222
  Serious: Yes (Hospitalization, Other)
  Sender: FDA-Public Use
  Company Number: US-US-EMD SERONO, INC.-7071506

PATIENT
  Sex: Male

DRUGS (1)
  1. REBIF [Suspect]
     Indication: MULTIPLE SCLEROSIS
     Route: 058
     Dates: start: 20110612

REACTIONS (8)
  - INTERVERTEBRAL DISC PROTRUSION [None]
  - CONVULSION [None]
  - FEELING HOT [None]
  - SPINAL FRACTURE [None]
  - CENTRAL NERVOUS SYSTEM LESION [None]
  - INSOMNIA [None]
  - INJECTION SITE ERYTHEMA [None]
  - HEADACHE [None]
